FAERS Safety Report 8735544 (Version 2)
Quarter: 2012Q4

REPORT INFORMATION
  Report Type: 
  Country: NL (occurrence: NL)
  Receive Date: 20120822
  Receipt Date: 20120905
  Transmission Date: 20130627
  Serious: Yes (Death, Other)
  Sender: FDA-Public Use
  Company Number: PHHY2012NL071999

PATIENT
  Age: 81 Year
  Sex: Male

DRUGS (3)
  1. ZOMETA [Suspect]
     Indication: PROSTATE CANCER METASTATIC
     Dosage: 4mg/100ml once per 28 days
     Dates: start: 20110524
  2. ZOMETA [Suspect]
     Dosage: 4mg/100ml once per 28 days
     Dates: start: 20120621
  3. ZOMETA [Suspect]
     Dosage: 4mg/100ml once per 28 days
     Dates: start: 20120713

REACTIONS (2)
  - Death [Fatal]
  - General physical health deterioration [Unknown]
